FAERS Safety Report 21545102 (Version 1)
Quarter: 2022Q4

REPORT INFORMATION
  Report Type: Spontaneous
  Country: GB (occurrence: GB)
  Receive Date: 20221103
  Receipt Date: 20221103
  Transmission Date: 20230113
  Serious: Yes (Other)
  Sender: FDA-Public Use
  Company Number: GB-MHRA-MED-202210212037406580-MSJDL

PATIENT
  Age: 35 Year
  Sex: Female
  Weight: 56 kg

DRUGS (1)
  1. SERTRALINE [Suspect]
     Active Substance: SERTRALINE HYDROCHLORIDE
     Indication: Anxiety
     Dosage: 50 MILLIGRAM, ONCE A DAY
     Route: 065
     Dates: start: 20220908, end: 20220912

REACTIONS (6)
  - Anxiety [Not Recovered/Not Resolved]
  - Panic attack [Not Recovered/Not Resolved]
  - Negative thoughts [Recovering/Resolving]
  - Morbid thoughts [Recovering/Resolving]
  - Feelings of worthlessness [Not Recovered/Not Resolved]
  - Maternal exposure during breast feeding [Unknown]

NARRATIVE: CASE EVENT DATE: 20220909
